FAERS Safety Report 5319449-8 (Version None)
Quarter: 2007Q2

REPORT INFORMATION
  Report Type: 
  Country: None (occurrence: None)
  Receive Date: 20070508
  Receipt Date: 20070427
  Transmission Date: 20071010
  Serious: Yes (Hospitalization)
  Sender: FDA-Public Use
  Company Number: AU-ELI_LILLY_AND_COMPANY-AU200702002348

PATIENT
  Age: 9 Year
  Sex: Male
  Weight: 10.975 kg

DRUGS (1)
  1. STRATTERA [Suspect]
     Indication: ATTENTION DEFICIT/HYPERACTIVITY DISORDER
     Dosage: 35 MG, DAILY (1/D)
     Route: 048
     Dates: start: 20060601, end: 20060717

REACTIONS (1)
  - HEPATITIS [None]
